FAERS Safety Report 15609633 (Version 1)
Quarter: 2018Q4

REPORT INFORMATION
  Report Type: Spontaneous
  Country: GB (occurrence: GB)
  Receive Date: 20181113
  Receipt Date: 20181113
  Transmission Date: 20190205
  Serious: Yes (Hospitalization, Other)
  Sender: FDA-Public Use
  Company Number: GB-BRISTOL-MYERS SQUIBB COMPANY-BMS-2018-102872

PATIENT
  Age: 81 Year
  Sex: Male
  Weight: 82 kg

DRUGS (15)
  1. TRIMETHOPRIM. [Concomitant]
     Active Substance: TRIMETHOPRIM
     Indication: PRODUCT USED FOR UNKNOWN INDICATION
     Dosage: 200 MG, UNK,NIGHT, DRUG INTERVAL DOSAGE UNIT 1 DAY
     Route: 065
     Dates: start: 20170609, end: 20170626
  2. EPLERENONE. [Concomitant]
     Active Substance: EPLERENONE
     Indication: PRODUCT USED FOR UNKNOWN INDICATION
     Dosage: 25 MG, UNK, DRUG INTERVAL DOSAGE UNIT NUMBER 1 DAY
     Route: 065
     Dates: start: 20170516
  3. BRALTUS [Concomitant]
     Indication: PRODUCT USED FOR UNKNOWN INDICATION
     Dosage: 10 ?G, UNK DRUG STRUCTURE DOSAGE NUMBER 10 G, DRUG IONTERVAL DOSAGE UNIT 1 DAY
     Route: 055
     Dates: start: 20170321
  4. AMIODARONE [Concomitant]
     Active Substance: AMIODARONE
     Indication: PRODUCT USED FOR UNKNOWN INDICATION
     Dosage: 200 MG, UNK, DRUG INTERVAL DOSAGE UNIT 1 DAY
     Route: 065
     Dates: start: 20170516
  5. RAMIPRIL. [Concomitant]
     Active Substance: RAMIPRIL
     Indication: PRODUCT USED FOR UNKNOWN INDICATION
     Dosage: 2.5 MG, UNK, DRUG INTERVAL DOSAGE UNIT 1 DAY
     Route: 065
     Dates: start: 20170626
  6. FOSTAIR [Concomitant]
     Active Substance: BECLOMETHASONE\FORMOTEROL
     Indication: PRODUCT USED FOR UNKNOWN INDICATION
     Dosage: 800 ?G, UNK,200MICROGRAMS/DOSE / 6 MICROGRAMS
     Route: 055
     Dates: start: 20170626
  7. VENTOLIN [Concomitant]
     Active Substance: ALBUTEROL SULFATE
     Indication: PRODUCT USED FOR UNKNOWN INDICATION
     Dosage: 200 ?G, UNK, DRUG STRUCTURE DOSAGE NUMBER 200 G
     Route: 055
     Dates: start: 20160923
  8. LAXIDO [Concomitant]
     Active Substance: POLYETHYLENE GLYCOL 3350\POTASSIUM CHLORIDE\SODIUM BICARBONATE\SODIUM CHLORIDE
     Indication: PRODUCT USED FOR UNKNOWN INDICATION
     Dosage: UNK, 2 DAILY UNTIL MOTIONS ARE SOFT THEN ONE DAILY
     Route: 048
  9. SIMVASTATIN. [Concomitant]
     Active Substance: SIMVASTATIN
     Indication: PRODUCT USED FOR UNKNOWN INDICATION
     Dosage: 40 MG, UNK, AT NIGHT, DRUG STRUCTURE DOSAGE NUMBER 1 DAY
     Route: 065
     Dates: start: 20170626
  10. WARFARIN SODIUM. [Suspect]
     Active Substance: WARFARIN SODIUM
     Indication: ATRIAL FIBRILLATION
     Dosage: 1 MG, UNK
     Route: 048
     Dates: start: 20150626, end: 20170619
  11. DOXYCYCLINE. [Concomitant]
     Active Substance: DOXYCYCLINE
     Indication: PRODUCT USED FOR UNKNOWN INDICATION
     Dosage: 100 MG, UNK,2 IMMEDIATELY THEN 1 EVERY DAY
     Route: 065
  12. PREDNISOLONE. [Concomitant]
     Active Substance: PREDNISOLONE
     Indication: PRODUCT USED FOR UNKNOWN INDICATION
     Dosage: 40 MG, UNK, DRUG INTERVAL DOSAGE UNIT 1 DAY
     Route: 065
     Dates: start: 20170602
  13. FUROSEMIDE. [Concomitant]
     Active Substance: FUROSEMIDE
     Indication: PRODUCT USED FOR UNKNOWN INDICATION
     Dosage: 40 MG, UNK, DRUG INTERVAL DOSAGE UNIT NUMBER 1 DAY
     Route: 065
     Dates: start: 20170626, end: 20170717
  14. KONAKION MM [Concomitant]
     Active Substance: PHYTONADIONE
     Indication: PRODUCT USED FOR UNKNOWN INDICATION
     Dosage: UNK,AS DIRECTED. 10MG/ML
     Route: 065
  15. LANSOPRAZOLE. [Concomitant]
     Active Substance: LANSOPRAZOLE
     Indication: PRODUCT USED FOR UNKNOWN INDICATION
     Dosage: 30 MG, UNK, DRUG INTERVAL DOSAGE UNIT NUMBER 1 DAY
     Route: 065
     Dates: start: 20170616

REACTIONS (3)
  - Subdural haematoma [Recovered/Resolved]
  - Muscular weakness [Recovered/Resolved with Sequelae]
  - Dysarthria [Recovered/Resolved with Sequelae]

NARRATIVE: CASE EVENT DATE: 20170618
